FAERS Safety Report 8328413-6 (Version None)
Quarter: 2012Q2

REPORT INFORMATION
  Report Type: 
  Country: None (occurrence: None)
  Receive Date: 20120502
  Receipt Date: 20120420
  Transmission Date: 20120825
  Serious: Yes (Hospitalization)
  Sender: FDA-Public Use
  Company Number: PHEH2012US007653

PATIENT
  Sex: Female

DRUGS (4)
  1. CREON [Concomitant]
  2. TOBI [Suspect]
     Indication: CYSTIC FIBROSIS
     Dosage: 300 MG, BID
  3. PULMOZYME [Concomitant]
     Dosage: 2.5 MG, BID
  4. FLONASE [Concomitant]
     Dosage: 1 DF, QD

REACTIONS (13)
  - BLOOD GLUCOSE INCREASED [None]
  - LEUKOCYTOSIS [None]
  - PULMONARY CONGESTION [None]
  - BLOOD PRESSURE DECREASED [None]
  - PRODUCTIVE COUGH [None]
  - PULMONARY FUNCTION TEST DECREASED [None]
  - DYSPNOEA [None]
  - DISEASE PROGRESSION [None]
  - CYSTIC FIBROSIS [None]
  - PSEUDOMONAS BRONCHITIS [None]
  - SPUTUM ABNORMAL [None]
  - BRONCHIECTASIS [None]
  - PANCREATIC INSUFFICIENCY [None]
